FAERS Safety Report 7145939-1 (Version None)
Quarter: 2010Q4

REPORT INFORMATION
  Report Type: 
  Country: None (occurrence: None)
  Receive Date: 20101208
  Receipt Date: 20100426
  Transmission Date: 20110411
  Serious: No
  Sender: FDA-Public Use
  Company Number: US-ABBOTT-10P-163-0641936-00

PATIENT
  Sex: Female

DRUGS (3)
  1. ERYPED [Suspect]
     Indication: COUGH
     Dates: start: 20100422
  2. HUMALOG [Concomitant]
     Indication: DIABETES MELLITUS
     Dosage: INSULIN PUMP PER SLIDING SCALE
     Dates: start: 20070101
  3. PREVACID [Concomitant]
     Indication: GASTROOESOPHAGEAL REFLUX DISEASE

REACTIONS (1)
  - BLOOD GLUCOSE INCREASED [None]
